FAERS Safety Report 22337568 (Version 3)
Quarter: 2023Q2

REPORT INFORMATION
  Report Type: Spontaneous
  Country: FR (occurrence: None)
  Receive Date: 20230518
  Receipt Date: 20230623
  Transmission Date: 20230722
  Serious: Yes (Other)
  Sender: FDA-Public Use
  Company Number: 2023A111708

PATIENT
  Age: 25536 Day
  Sex: Male
  Weight: 66 kg

DRUGS (8)
  1. TAGRISSO [Suspect]
     Active Substance: OSIMERTINIB
     Indication: Lung neoplasm malignant
     Route: 048
     Dates: start: 20200722, end: 20200817
  2. TAGRISSO [Suspect]
     Active Substance: OSIMERTINIB
     Indication: EGFR gene mutation
     Route: 048
     Dates: start: 20200722, end: 20200817
  3. GLIMEPIRIDE [Concomitant]
     Active Substance: GLIMEPIRIDE
     Dosage: 0 1 0
  4. METFORMIN PAMOATE [Concomitant]
     Active Substance: METFORMIN PAMOATE
     Dosage: 1 0 1
  5. JANUVIA [Concomitant]
     Active Substance: SITAGLIPTIN PHOSPHATE
     Dosage: 0 0 1
  6. ALLOPURINOL [Concomitant]
     Active Substance: ALLOPURINOL
     Dosage: 1 0 0
  7. KARDEGIC [Concomitant]
     Active Substance: ASPIRIN DL-LYSINE
     Dosage: 0.1.0
  8. ATENOLOL [Concomitant]
     Active Substance: ATENOLOL
     Dosage: 1.0.0

REACTIONS (9)
  - Renal failure [Recovered/Resolved with Sequelae]
  - Neurotoxicity [Unknown]
  - Asthenia [Recovering/Resolving]
  - Decreased appetite [Recovering/Resolving]
  - Confusional state [Recovering/Resolving]
  - Thrombocytopenia [Recovering/Resolving]
  - General physical condition abnormal [Recovering/Resolving]
  - Psychomotor retardation [Unknown]
  - Off label use [Unknown]

NARRATIVE: CASE EVENT DATE: 20200810
